FAERS Safety Report 4635600-7 (Version None)
Quarter: 2005Q2

REPORT INFORMATION
  Report Type: 
  Country: None (occurrence: None)
  Receive Date: 20050414
  Receipt Date: 20050331
  Transmission Date: 20051028
  Serious: Yes (Hospitalization)
  Sender: FDA-Public Use
  Company Number: 2005-127038-NL

PATIENT
  Age: 57 Year
  Sex: Female

DRUGS (4)
  1. DEXAMETHASONE [Suspect]
     Dosage: DF
  2. ZOLEDRONIC ACID [Suspect]
     Indication: METASTASES TO BONE
     Dosage: 4 MG TW INTRAVENOUS (NOS)
     Route: 042
     Dates: start: 20040924
  3. CHEMOTHERAPEUTICS, OTHER [Suspect]
     Indication: METASTASES TO BONE
     Dosage: DF
  4. LANSOPRAZOLE [Concomitant]

REACTIONS (8)
  - CHEST PAIN [None]
  - DIZZINESS POSTURAL [None]
  - FEELING ABNORMAL [None]
  - GASTRITIS [None]
  - HAEMOGLOBIN DECREASED [None]
  - HYPOAESTHESIA [None]
  - MALAISE [None]
  - NAUSEA [None]
